FAERS Safety Report 14955495 (Version 1)
Quarter: 2018Q2

REPORT INFORMATION
  Report Type: Spontaneous
  Country: ES (occurrence: ES)
  Receive Date: 20180531
  Receipt Date: 20180531
  Transmission Date: 20180711
  Serious: Yes (Hospitalization)
  Sender: FDA-Public Use
  Company Number: ES-TEVA-2018-ES-897567

PATIENT
  Age: 78 Year
  Sex: Female
  Weight: 80 kg

DRUGS (14)
  1. ALOPURINOL CINFA 300 MG COMPRIMIDOS EFG, 30 COMPRIMIDOS [Suspect]
     Active Substance: ALLOPURINOL
     Dosage: 300 MILLIGRAM DAILY;
     Route: 048
     Dates: start: 20180110, end: 20180313
  2. HIDROFEROL 0,266 MG SOLUCION ORAL , 10 AMPOLLAS BEBIBLES DE 1,5 ML [Concomitant]
     Active Substance: CALCIFEDIOL
     Route: 048
     Dates: start: 20180216
  3. SYMBICORT 160 MICROGRAMOS/4,5 MICROGRAMOS/INHALACION SUSPENSION PARA I [Concomitant]
     Route: 055
     Dates: start: 20180117
  4. FOSFOCINA 500 MG CAPSULAS, 24 C?PSULAS [Concomitant]
     Indication: URINARY TRACT INFECTION
     Dosage: 500 MILLIGRAM DAILY;
     Route: 048
     Dates: start: 20130226
  5. COLCHICINA SEID 0,5 MG COMPRIMIDOS , 20 COMPRIMIDOS [Suspect]
     Active Substance: COLCHICINE
     Dosage: .5 MILLIGRAM DAILY;
     Route: 048
     Dates: start: 20180110, end: 20180218
  6. OMEPRAZOL CINFAMED 20 MG CAPSULAS DURAS GASTRORESISTENTES EFG , 28 C?P [Concomitant]
     Dosage: 20 MILLIGRAM DAILY;
     Route: 048
     Dates: start: 20120604
  7. FUNGAREST 20 MG/G CREMA , 1 TUBO DE 30 G [Concomitant]
     Route: 061
     Dates: start: 20180216
  8. CIPROFLOXACINO TEVAGEN 500 MG COMPRIMIDOS RECUBIERTOS CON PELICULA EFG [Suspect]
     Active Substance: CIPROFLOXACIN HYDROCHLORIDE
     Indication: URINARY TRACT INFECTION
     Route: 048
     Dates: start: 20180216, end: 20180227
  9. SINTROM [Concomitant]
     Active Substance: ACENOCOUMAROL
     Route: 065
  10. LEVETIRACETAM CINFA 500 MG COMPRIMIDOS RECUBIERTOS CON PELICULA EFG, 6 [Concomitant]
     Route: 048
     Dates: start: 20170425
  11. ESPIRONOLACTONA ALTER 25 MG COMPRIMIDOS RECUBIERTOS EFG, 50 COMPRIMIDO [Concomitant]
     Dosage: 12.5 MILLIGRAM DAILY;
     Route: 048
     Dates: start: 20140715
  12. BISOPROLOL CINFA 2,5 MG COMPRIMIDOS EFG , 28 COMPRIMIDOS (BLISTER PVC/ [Concomitant]
     Dosage: 2.5 MILLIGRAM DAILY;
     Route: 048
     Dates: start: 20120604
  13. ZALDIAR 37,5 MG/325 MG COMPRIMIDOS RECUBIERTOS CON PELICULA , 60 COMPR [Concomitant]
     Route: 048
  14. FUROSEMIDA CINFA 40 MG COMPRIMIDOS EFG, 30 COMPRIMIDOS [Concomitant]
     Dosage: 120 MILLIGRAM DAILY;
     Route: 048
     Dates: start: 20120604

REACTIONS (3)
  - Pruritus [Recovered/Resolved]
  - Skin exfoliation [Recovered/Resolved]
  - Erythema [Recovered/Resolved]

NARRATIVE: CASE EVENT DATE: 20180303
